FAERS Safety Report 24811693 (Version 2)
Quarter: 2025Q1

REPORT INFORMATION
  Report Type: Spontaneous
  Country: US (occurrence: US)
  Receive Date: 20250106
  Receipt Date: 20250107
  Transmission Date: 20250408
  Serious: Yes (Other)
  Sender: PFIZER
  Company Number: US-PFIZER INC-PV202400170754

PATIENT
  Age: 38 Year
  Sex: Female

DRUGS (1)
  1. PROVERA [Suspect]
     Active Substance: MEDROXYPROGESTERONE ACETATE
     Route: 048
     Dates: start: 20140613

REACTIONS (8)
  - Abdominal pain [Unknown]
  - Lip swelling [Unknown]
  - Tracheal stenosis [Unknown]
  - Eye swelling [Recovering/Resolving]
  - Vaginal haemorrhage [Not Recovered/Not Resolved]
  - Treatment failure [Unknown]
  - Endometrial disorder [Unknown]
  - Ovarian cyst [Unknown]

NARRATIVE: CASE EVENT DATE: 20140701
